FAERS Safety Report 8996613 (Version 2)
Quarter: 2013Q1

REPORT INFORMATION
  Report Type: Report from Study
  Country: BE (occurrence: BE)
  Receive Date: 20130104
  Receipt Date: 20130111
  Transmission Date: 20140127
  Serious: Yes (Hospitalization)
  Sender: FDA-Public Use
  Company Number: BE-GENZYME-CLOF-1002453

PATIENT
  Age: 60 Year
  Sex: Male
  Weight: 79 kg

DRUGS (7)
  1. EVOLTRA [Suspect]
     Indication: ACUTE MYELOID LEUKAEMIA
     Dosage: 19.70 MG, UNK
     Route: 042
     Dates: start: 20121204
  2. IDARUBICIN [Suspect]
     Indication: ACUTE MYELOID LEUKAEMIA
     Dosage: 23.64 MG, UNK
     Route: 042
     Dates: start: 20121204
  3. CYTARABINE [Suspect]
     Indication: ACUTE MYELOID LEUKAEMIA
     Dosage: 394 MG, UNK
     Route: 042
     Dates: start: 20121204
  4. EMCONCOR [Concomitant]
     Indication: CARDIOVASCULAR EVENT PROPHYLAXIS
     Dosage: 5 MG, UNK
     Route: 048
     Dates: start: 20121204
  5. PANTOMED [Concomitant]
     Indication: PAIN PROPHYLAXIS
     Dosage: 20 MG, UNK
     Route: 048
     Dates: start: 20121204
  6. ASAFLOW [Concomitant]
     Indication: CARDIOVASCULAR EVENT PROPHYLAXIS
     Dosage: 80 MG, UNK
     Route: 048
     Dates: start: 20121204
  7. FRAXIPARINE [Concomitant]
     Indication: THROMBOSIS PROPHYLAXIS
     Dosage: 0.6 ML, UNK
     Route: 058
     Dates: start: 20121204

REACTIONS (1)
  - Epilepsy [Recovered/Resolved]
